FAERS Safety Report 5840482-1 (Version None)
Quarter: 2008Q3

REPORT INFORMATION
  Report Type: 
  Country: None (occurrence: None)
  Receive Date: 20080811
  Receipt Date: 20080624
  Transmission Date: 20090109
  Serious: No
  Sender: FDA-Public Use
  Company Number: US-BAYER-200812844BCC

PATIENT
  Age: 34 Year
  Sex: Female
  Weight: 136 kg

DRUGS (1)
  1. ALEVE [Suspect]
     Indication: NASOPHARYNGITIS
     Dosage: TOTAL DAILY DOSE: 1 DF  UNIT DOSE: 1 DF
     Route: 048
     Dates: start: 20080615

REACTIONS (3)
  - DIZZINESS [None]
  - NERVOUSNESS [None]
  - SOMNOLENCE [None]
